FAERS Safety Report 10359270 (Version 4)
Quarter: 2014Q3

REPORT INFORMATION
  Report Type: Spontaneous
  Country: US (occurrence: US)
  Receive Date: 20140804
  Receipt Date: 20140905
  Transmission Date: 20150326
  Serious: Yes (Hospitalization, Other)
  Sender: FDA-Public Use
  Company Number: US-UNITED THERAPEUTICS-UNT-2014-004432

PATIENT
  Age: 60 Year
  Sex: Female
  Weight: 88.89 kg

DRUGS (2)
  1. TRACLEER [Concomitant]
     Active Substance: BOSENTAN\BOSENTAN MONOHYDRATE
     Indication: PRODUCT USED FOR UNKNOWN INDICATION
  2. REMODULIN [Suspect]
     Active Substance: TREPROSTINIL
     Indication: PULMONARY HYPERTENSION
     Dosage: 0.0775 ?G/KG, CONTINUING
     Route: 041
     Dates: start: 20070803

REACTIONS (3)
  - Haematemesis [Recovered/Resolved]
  - Gastrointestinal haemorrhage [Recovered/Resolved]
  - Arteriovenous malformation [Unknown]

NARRATIVE: CASE EVENT DATE: 20140718
